FAERS Safety Report 25731280 (Version 4)
Quarter: 2025Q4

REPORT INFORMATION
  Report Type: Spontaneous
  Country: US (occurrence: US)
  Receive Date: 20250827
  Receipt Date: 20251016
  Transmission Date: 20260118
  Serious: No
  Sender: PFIZER
  Company Number: US-PFIZER INC-202500168951

PATIENT
  Age: 21 Year
  Sex: Female
  Weight: 58.97 kg

DRUGS (2)
  1. GENOTROPIN [Suspect]
     Active Substance: SOMATROPIN
     Indication: Growth hormone deficiency
     Dosage: 0.4 MG, DAILY
  2. ESTRADIOL [Concomitant]
     Active Substance: ESTRADIOL
     Indication: Growth hormone deficiency
     Dosage: 0.5 MG, DAILY, SHE CHANGES IT ONCE A WEEK.^
     Route: 062

REACTIONS (1)
  - Device mechanical issue [Unknown]

NARRATIVE: CASE EVENT DATE: 20250820
